FAERS Safety Report 9287981 (Version 3)
Quarter: 2013Q3

REPORT INFORMATION
  Report Type: Spontaneous
  Country: US (occurrence: US)
  Receive Date: 20130514
  Receipt Date: 20130925
  Transmission Date: 20140515
  Serious: Yes (Death)
  Sender: FDA-Public Use
  Company Number: US-BAYER-2013-057860

PATIENT
  Age: 30 Year
  Sex: Female

DRUGS (10)
  1. YAZ [Suspect]
  2. YASMIN [Suspect]
  3. OCELLA [Suspect]
  4. RECLAST [Concomitant]
  5. DIOVAN [Concomitant]
  6. EFFEXOR [Concomitant]
  7. NEXIUM [Concomitant]
  8. RYTHMOL [Concomitant]
  9. EVISTA CHUGAI [Concomitant]
  10. PRAVASTATIN [Concomitant]

REACTIONS (4)
  - Cardiac arrest [Fatal]
  - Pulmonary embolism [Fatal]
  - Injury [None]
  - Pain [None]
